FAERS Safety Report 6424490-8 (Version None)
Quarter: 2009Q4

REPORT INFORMATION
  Report Type: 
  Country: None (occurrence: None)
  Receive Date: 20091103
  Receipt Date: 20091026
  Transmission Date: 20100525
  Serious: Yes (Hospitalization)
  Sender: FDA-Public Use
  Company Number: BR-ASTRAZENECA-2009SE23240

PATIENT
  Age: 82 Year
  Sex: Male
  Weight: 64 kg

DRUGS (8)
  1. ATACAND [Suspect]
     Indication: HYPERTENSION
     Route: 048
     Dates: start: 20020101, end: 20091005
  2. ATACAND [Suspect]
     Route: 048
     Dates: start: 20091001
  3. SIMVASTATIN [Concomitant]
     Route: 048
     Dates: start: 20020101
  4. ASA PREVENT [Concomitant]
     Indication: ANTICOAGULANT THERAPY
     Route: 048
     Dates: start: 20020101
  5. OMEPRAZOLE [Concomitant]
     Indication: PROPHYLAXIS
     Route: 048
     Dates: start: 20060101
  6. MONOCORDIL [Concomitant]
     Dosage: TWO TIMES A DAY
  7. CARVEDILOL [Concomitant]
     Dosage: TWO TIMES A DAY
  8. SELOZOK [Concomitant]

REACTIONS (2)
  - ARTERIAL OCCLUSIVE DISEASE [None]
  - BLOOD PRESSURE INADEQUATELY CONTROLLED [None]
